FAERS Safety Report 4846475-5 (Version None)
Quarter: 2005Q4

REPORT INFORMATION
  Report Type: 
  Country: None (occurrence: None)
  Receive Date: 20051202
  Receipt Date: 20051128
  Transmission Date: 20060501
  Serious: Yes (Other)
  Sender: FDA-Public Use
  Company Number: S05-USA-04179-01

PATIENT
  Age: 51 Year
  Sex: Female

DRUGS (2)
  1. LEXAPRO [Suspect]
     Indication: FIBROMYALGIA
     Dates: start: 20050830, end: 20050905
  2. VITAMINS [Concomitant]

REACTIONS (2)
  - BLINDNESS UNILATERAL [None]
  - OPTIC NEURITIS [None]
